FAERS Safety Report 6785849-2 (Version None)
Quarter: 2010Q2

REPORT INFORMATION
  Report Type: 
  Country: None (occurrence: None)
  Receive Date: 20100623
  Receipt Date: 20100611
  Transmission Date: 20101027
  Serious: Yes (Other)
  Sender: FDA-Public Use
  Company Number: JP-PFIZER INC-2010048929

PATIENT
  Age: 38 Year
  Sex: Female

DRUGS (5)
  1. CHAMPIX [Suspect]
     Dosage: 0.5 MG, 1X/DAY
     Route: 048
     Dates: start: 20100327, end: 20100406
  2. CHAMPIX [Suspect]
     Dosage: 2 MG, 1X/DAY
     Route: 048
     Dates: start: 20100407
  3. HALCION [Concomitant]
     Indication: DEPRESSION
     Dosage: 0.25 MG, 1X/DAY
     Route: 048
     Dates: start: 20100327
  4. LEXOTAN [Concomitant]
     Indication: DEPRESSION
     Dosage: UNK
     Route: 048
     Dates: start: 20100327
  5. TOLEDOMIN [Concomitant]
     Indication: DEPRESSION
     Dosage: UNK

REACTIONS (2)
  - INSOMNIA [None]
  - MICTURITION DISORDER [None]
